FAERS Safety Report 4416004-9 (Version None)
Quarter: 2004Q3

REPORT INFORMATION
  Report Type: 
  Country: None (occurrence: None)
  Receive Date: 20040802
  Receipt Date: 20040721
  Transmission Date: 20050211
  Serious: Yes (Life-Threatening)
  Sender: FDA-Public Use
  Company Number: 04H-066-0267650-00

PATIENT

DRUGS (1)
  1. PENTOTHAL [Suspect]

REACTIONS (1)
  - COMA [None]
